FAERS Safety Report 8994803 (Version 4)
Quarter: 2018Q4

REPORT INFORMATION
  Report Type: Report from Study
  Country: US (occurrence: US)
  Receive Date: 20130102
  Receipt Date: 20181107
  Transmission Date: 20190205
  Serious: No
  Sender: FDA-Public Use
  Company Number: US-AMGEN-USASP2012078910

PATIENT
  Age: 64 Year
  Sex: Female

DRUGS (2)
  1. ENBREL [Suspect]
     Active Substance: ETANERCEPT
     Dosage: 50 MG, UNK
     Route: 065
  2. ENBREL [Suspect]
     Active Substance: ETANERCEPT
     Indication: RHEUMATOID ARTHRITIS
     Dosage: 50 MG, QWK
     Route: 065
     Dates: start: 20110701

REACTIONS (9)
  - Nail avulsion [Unknown]
  - Periarthritis [Recovering/Resolving]
  - Arthralgia [Recovering/Resolving]
  - Skin laceration [Unknown]
  - Limb injury [Unknown]
  - Back pain [Recovering/Resolving]
  - Drug ineffective [Unknown]
  - Cystitis [Unknown]
  - Fall [Unknown]

NARRATIVE: CASE EVENT DATE: 2012
